FAERS Safety Report 23185203 (Version 1)
Quarter: 2023Q4

REPORT INFORMATION
  Report Type: Report from Study
  Country: US (occurrence: US)
  Receive Date: 20231115
  Receipt Date: 20231115
  Transmission Date: 20240110
  Serious: Yes (Other)
  Sender: FDA-Public Use
  Company Number: US-AstraZeneca-CH-00505440A

PATIENT
  Sex: Female

DRUGS (1)
  1. ULTOMIRIS [Suspect]
     Active Substance: RAVULIZUMAB-CWVZ
     Indication: Product used for unknown indication
     Dosage: UNK
     Route: 065

REACTIONS (9)
  - Myasthenia gravis [Unknown]
  - Eyelid ptosis [Unknown]
  - Diplopia [Unknown]
  - Intervertebral disc compression [Unknown]
  - Drug ineffective [Unknown]
  - Mydriasis [Unknown]
  - Spinal pain [Unknown]
  - Myalgia [Unknown]
  - Back pain [Unknown]
